FAERS Safety Report 15832521 (Version 1)
Quarter: 2018Q4

REPORT INFORMATION
  Report Type: Spontaneous
  Country: US (occurrence: US)
  Receive Date: 20181220
  Receipt Date: 20181220
  Transmission Date: 20190205
  Serious: No
  Sender: FDA-Public Use
  Company Number: None

PATIENT
  Age: 72 Year
  Sex: Female
  Weight: 76.2 kg

DRUGS (2)
  1. RASUVO [Suspect]
     Active Substance: METHOTREXATE SODIUM
     Indication: RHEUMATOID ARTHRITIS
     Dosage: INJECT 20MG (0.4ML) SUBCUTANEOUSLY ONCE  WEEKLY ON THE SAME DAY EACH WEEK  AS DIRECTED
     Route: 058
     Dates: start: 201707
  2. RASUVO [Suspect]
     Active Substance: METHOTREXATE SODIUM
     Indication: OSTEOPOROSIS
     Dosage: INJECT 20MG (0.4ML) SUBCUTANEOUSLY ONCE  WEEKLY ON THE SAME DAY EACH WEEK  AS DIRECTED
     Route: 058
     Dates: start: 201707

REACTIONS (1)
  - Influenza [None]
